FAERS Safety Report 5869605-5 (Version None)
Quarter: 2008Q3

REPORT INFORMATION
  Report Type: 
  Country: None (occurrence: None)
  Receive Date: 20080904
  Receipt Date: 20071231
  Transmission Date: 20090109
  Serious: No
  Sender: FDA-Public Use
  Company Number: US-KINGPHARMUSA00001-K200701657

PATIENT

DRUGS (1)
  1. CYTOMEL [Suspect]
     Dosage: 5 MCG, QD
     Route: 048
     Dates: start: 20071001

REACTIONS (8)
  - CONSTIPATION [None]
  - HEADACHE [None]
  - NECK PAIN [None]
  - OEDEMA PERIPHERAL [None]
  - POLLAKIURIA [None]
  - RASH [None]
  - THYROXINE DECREASED [None]
  - VISION BLURRED [None]
